FAERS Safety Report 16624532 (Version 1)
Quarter: 2019Q3

REPORT INFORMATION
  Report Type: Spontaneous
  Country: US (occurrence: US)
  Receive Date: 20190723
  Receipt Date: 20190723
  Transmission Date: 20191004
  Serious: Yes (Disabling)
  Sender: FDA-Public Use
  Company Number: None

PATIENT
  Age: 63 Year
  Sex: Female
  Weight: 45 kg

DRUGS (1)
  1. TAXOTERE [Suspect]
     Active Substance: DOCETAXEL
     Indication: BREAST CANCER
     Dosage: ?          QUANTITY:3 UNKNOWN;OTHER FREQUENCY:EVERY THREE WEEKS;?
     Route: 042
     Dates: start: 20160920, end: 20170107

REACTIONS (10)
  - Nausea [None]
  - Impaired work ability [None]
  - Vomiting [None]
  - Deafness [None]
  - Memory impairment [None]
  - Paraesthesia [None]
  - Depression [None]
  - Nerve compression [None]
  - Dizziness [None]
  - Disability [None]

NARRATIVE: CASE EVENT DATE: 20171015
